FAERS Safety Report 5053700-7 (Version None)
Quarter: 2006Q3

REPORT INFORMATION
  Report Type: 
  Country: None (occurrence: None)
  Receive Date: 20060718
  Receipt Date: 20060704
  Transmission Date: 20061208
  Serious: Yes (Other)
  Sender: FDA-Public Use
  Company Number: US-AMGEN-US185232

PATIENT
  Sex: Female

DRUGS (8)
  1. ARANESP [Suspect]
     Indication: RENAL FAILURE CHRONIC
     Route: 042
     Dates: start: 20051215
  2. RECORMON [Suspect]
     Route: 058
     Dates: start: 19991115
  3. CARBAMAZEPINE [Concomitant]
  4. CALCIUM ACETATE [Concomitant]
  5. BROMAZEPAM [Concomitant]
  6. GEMFIBROZIL [Concomitant]
  7. ASCORBIC ACID [Concomitant]
  8. CLONAZEPAM [Concomitant]

REACTIONS (1)
  - ANAEMIA [None]
